FAERS Safety Report 18621366 (Version 3)
Quarter: 2021Q4

REPORT INFORMATION
  Report Type: Spontaneous
  Country: US (occurrence: US)
  Receive Date: 20201215
  Receipt Date: 20211020
  Transmission Date: 20220303
  Serious: Yes (Hospitalization)
  Sender: FDA-Public Use
  Company Number: US-VIFOR (INTERNATIONAL) INC.-VIT-2020-11539

PATIENT
  Age: 46 Year
  Sex: Male

DRUGS (2)
  1. VELTASSA [Suspect]
     Active Substance: PATIROMER
     Indication: Hyperkalaemia
     Route: 048
     Dates: start: 20200924
  2. VELTASSA [Suspect]
     Active Substance: PATIROMER
     Indication: Chronic kidney disease

REACTIONS (6)
  - Coronavirus infection [Unknown]
  - Weight decreased [Unknown]
  - Illness [Unknown]
  - Decreased appetite [Unknown]
  - Product dose omission issue [Unknown]
  - Hospitalisation [Unknown]

NARRATIVE: CASE EVENT DATE: 20201112
